FAERS Safety Report 12325856 (Version 2)
Quarter: 2016Q2

REPORT INFORMATION
  Report Type: Spontaneous
  Country: US (occurrence: US)
  Receive Date: 20160503
  Receipt Date: 20160511
  Transmission Date: 20160815
  Serious: Yes (Hospitalization)
  Sender: FDA-Public Use
  Company Number: US-HORIZON-RAV-0085-2016

PATIENT
  Age: 7 Year
  Sex: Female

DRUGS (4)
  1. DUAL KAL [Concomitant]
     Indication: ORNITHINE TRANSCARBAMOYLASE DEFICIENCY
  2. RAVICTI [Suspect]
     Active Substance: GLYCEROL PHENYLBUTYRATE
     Indication: ORNITHINE TRANSCARBAMOYLASE DEFICIENCY
     Dosage: 3 ML TID
     Dates: start: 20141003
  3. CITRULLINE [Concomitant]
     Active Substance: CITRULLINE
  4. CYCLINEX-1 [Concomitant]

REACTIONS (3)
  - Upper limb fracture [Recovered/Resolved]
  - Upper limb fracture [Recovered/Resolved]
  - Fall [Recovered/Resolved]

NARRATIVE: CASE EVENT DATE: 20160318
